FAERS Safety Report 9023714 (Version 1)
Quarter: 2013Q1

REPORT INFORMATION
  Report Type: Spontaneous
  Country: FR (occurrence: FR)
  Receive Date: 20130121
  Receipt Date: 20130121
  Transmission Date: 20140127
  Serious: Yes (Hospitalization, Other)
  Sender: FDA-Public Use
  Company Number: FR-ELI_LILLY_AND_COMPANY-FR201301003264

PATIENT
  Age: 83 Year
  Sex: Male

DRUGS (3)
  1. CYMBALTA [Suspect]
     Dosage: UNK
     Route: 048
     Dates: end: 20121002
  2. FOSINOPRIL [Concomitant]
     Dosage: UNK
     Dates: end: 20121002
  3. HYDROCHLOROTHIAZIDE [Concomitant]
     Dosage: UNK
     Dates: end: 20121002

REACTIONS (7)
  - Head injury [Unknown]
  - Hyponatraemia [Recovered/Resolved]
  - Subdural haematoma [Unknown]
  - Subarachnoid haemorrhage [Unknown]
  - Contusion [Unknown]
  - Oedema [Unknown]
  - Gait disturbance [Not Recovered/Not Resolved]
